FAERS Safety Report 17457432 (Version 1)
Quarter: 2020Q1

REPORT INFORMATION
  Report Type: Report from Study
  Country: None (occurrence: US)
  Receive Date: 20200225
  Receipt Date: 20200225
  Transmission Date: 20200409
  Serious: Yes (Other)
  Sender: FDA-Public Use
  Company Number: US-ABBVIE-19K-163-2986997-00

PATIENT
  Age: 48 Year
  Sex: Female

DRUGS (3)
  1. HUMIRA [Suspect]
     Active Substance: ADALIMUMAB
     Indication: HIDRADENITIS
     Dosage: LOADING DOSE 4 SHOTS
     Route: 058
     Dates: start: 20191001, end: 20191001
  2. HUMIRA [Suspect]
     Active Substance: ADALIMUMAB
     Route: 058
  3. HUMIRA [Suspect]
     Active Substance: ADALIMUMAB
     Indication: PSORIASIS
     Dosage: LOADING DOSE 2 SHOTS
     Route: 058
     Dates: start: 20191022, end: 20191022

REACTIONS (17)
  - Dizziness [Unknown]
  - Nerve block [Unknown]
  - Joint stiffness [Unknown]
  - Furuncle [Unknown]
  - Peripheral swelling [Unknown]
  - Drug ineffective [Not Recovered/Not Resolved]
  - Condition aggravated [Unknown]
  - Musculoskeletal stiffness [Unknown]
  - Pain in extremity [Unknown]
  - Gastric infection [Unknown]
  - Arthralgia [Unknown]
  - Joint swelling [Unknown]
  - Arthritis [Unknown]
  - Diarrhoea [Unknown]
  - Pain [Unknown]
  - Inflammation [Unknown]
  - Psoriasis [Unknown]

NARRATIVE: CASE EVENT DATE: 20200221
